FAERS Safety Report 11413672 (Version 4)
Quarter: 2015Q4

REPORT INFORMATION
  Report Type: Spontaneous
  Country: US (occurrence: US)
  Receive Date: 20150824
  Receipt Date: 20151008
  Transmission Date: 20160304
  Serious: Yes (Hospitalization, Other)
  Sender: FDA-Public Use
  Company Number: US-B.I. PHARMACEUTICALS,INC./RIDGEFIELD-2015-BI-45077BP

PATIENT
  Age: 67 Year
  Sex: Female
  Weight: 83.01 kg

DRUGS (14)
  1. PROTONIX [Concomitant]
     Active Substance: PANTOPRAZOLE SODIUM
     Indication: GASTROOESOPHAGEAL REFLUX DISEASE
     Dosage: 40 MG
     Route: 048
     Dates: start: 2007
  2. VITAMIN D [Concomitant]
     Active Substance: CHOLECALCIFEROL
     Indication: VITAMIN D DEFICIENCY
     Dosage: 5000 U
     Route: 048
     Dates: start: 201506
  3. TOPICORT [Concomitant]
     Active Substance: DESOXIMETASONE
     Indication: PRODUCT USED FOR UNKNOWN INDICATION
     Dosage: STRENGTH: 0.05%; APPLY THIN FILM TO AFFECTED AREA
     Route: 061
  4. ALBUTEROL. [Concomitant]
     Active Substance: ALBUTEROL
     Indication: PRODUCT USED FOR UNKNOWN INDICATION
     Dosage: FORMULATION:NEBULIZER SOLUTION; ROUTE: BY NEBULIZER; STRENGTH: 0.083% 1 VIAL
     Route: 050
  5. SYMBICORT [Concomitant]
     Active Substance: BUDESONIDE\FORMOTEROL FUMARATE DIHYDRATE
     Indication: PRODUCT USED FOR UNKNOWN INDICATION
     Dosage: 4 ANZ
     Route: 055
  6. LIDEX [Concomitant]
     Active Substance: FLUOCINONIDE
     Indication: DRY SKIN
     Dosage: STRENGTH: 0.05%
     Route: 061
  7. SPIRIVA [Suspect]
     Active Substance: TIOTROPIUM BROMIDE MONOHYDRATE
     Indication: CHRONIC OBSTRUCTIVE PULMONARY DISEASE
     Dosage: 1 PUF
     Route: 055
     Dates: start: 20091006
  8. PRAVASTATIN [Concomitant]
     Active Substance: PRAVASTATIN\PRAVASTATIN SODIUM
     Indication: BLOOD CHOLESTEROL INCREASED
     Dosage: 40 MG
     Route: 048
     Dates: start: 201501
  9. NEOMYCIN/POLYMYXIN B [Concomitant]
     Indication: EAR INFECTION
     Dosage: FORMULATION: IRRIGATION SOLUTION; ROUTE: EAR; STRENGTH:40MG/200,000U PER 1ML, 3 DROPS INTO INFECTED
     Route: 050
  10. ZOLOFT [Concomitant]
     Active Substance: SERTRALINE HYDROCHLORIDE
     Indication: STRESS
     Dosage: 50 MG
     Route: 048
     Dates: start: 201507
  11. ASPIRIN. [Concomitant]
     Active Substance: ASPIRIN
     Indication: PRODUCT USED FOR UNKNOWN INDICATION
     Dosage: ENTERIC COATED
     Route: 065
  12. DESOXIMETASONE. [Concomitant]
     Active Substance: DESOXIMETASONE
     Indication: PRODUCT USED FOR UNKNOWN INDICATION
     Dosage: STRENGTH: 0.05%;  APPLY THIN FILM TO AFFECTED AREA
     Route: 065
  13. CLINDAMYCIN PHOSPHATE. [Concomitant]
     Active Substance: CLINDAMYCIN PHOSPHATE
     Indication: PRODUCT USED FOR UNKNOWN INDICATION
     Dosage: STRENGTH: 1%
     Route: 061
  14. PROAIR HFA [Concomitant]
     Active Substance: ALBUTEROL SULFATE
     Indication: PRODUCT USED FOR UNKNOWN INDICATION
     Dosage: ORAL INHALER; STRENGTH:90MCG/1ACTUATION
     Route: 055

REACTIONS (8)
  - Hearing impaired [Not Recovered/Not Resolved]
  - Nasopharyngitis [Unknown]
  - Dyspnoea [Recovered/Resolved]
  - Burning sensation [Recovered/Resolved]
  - Memory impairment [Not Recovered/Not Resolved]
  - Product quality issue [Unknown]
  - Dyspnoea [Recovered/Resolved]
  - Breast cancer [Recovered/Resolved]

NARRATIVE: CASE EVENT DATE: 201105
